FAERS Safety Report 5641694-2 (Version None)
Quarter: 2008Q1

REPORT INFORMATION
  Report Type: 
  Country: None (occurrence: None)
  Receive Date: 20080227
  Receipt Date: 20080225
  Transmission Date: 20080703
  Serious: Yes (Hospitalization)
  Sender: FDA-Public Use
  Company Number: DE-WYE-G01066808

PATIENT
  Sex: Female

DRUGS (27)
  1. TAVOR [Suspect]
     Indication: SEDATION
     Route: 042
     Dates: start: 20040923
  2. CEFTRIAXONE [Concomitant]
     Indication: SEPSIS
     Route: 042
     Dates: start: 20040911, end: 20040926
  3. PANTOZOL [Suspect]
     Indication: PROPHYLAXIS AGAINST GASTROINTESTINAL ULCER
     Dosage: 1 VIAL
     Route: 042
     Dates: start: 20040911, end: 20040926
  4. MULTITRACE [Concomitant]
     Indication: ELECTROLYTE SUBSTITUTION THERAPY
     Dosage: 1 VIAL DAILY
     Route: 042
     Dates: start: 20040914, end: 20040926
  5. FLUCLOXACILLIN [Concomitant]
     Indication: SEPSIS
     Route: 042
     Dates: start: 20040915, end: 20040927
  6. GLUCOSE INJECTION [Concomitant]
     Indication: BLOOD GLUCOSE DECREASED
     Dosage: 500 ML (40% SOLUTION FOR INJECTION) DAILY
     Route: 042
     Dates: start: 20040902, end: 20040930
  7. ENDOXAN [Suspect]
     Indication: WEGENER'S GRANULOMATOSIS
     Route: 048
     Dates: start: 20040910, end: 20040926
  8. ENDOXAN [Suspect]
     Route: 048
     Dates: start: 20040928, end: 20041002
  9. CERNEVIT-12 [Suspect]
     Indication: HYPOVITAMINOSIS
     Dosage: 1 VIAL DAILY
     Route: 042
     Dates: start: 20040914, end: 20041002
  10. PREDNISOLONE [Suspect]
     Indication: WEGENER'S GRANULOMATOSIS
     Dosage: 300 MG / 150 MG / 125 MG
     Route: 042
     Dates: start: 20040908, end: 20041003
  11. UROMITEXAN [Suspect]
     Indication: WEGENER'S GRANULOMATOSIS
     Dosage: 200 MG
     Route: 048
     Dates: start: 20040910, end: 20041011
  12. VALPROATE SODIUM [Suspect]
     Indication: EPILEPSY
     Route: 048
     Dates: start: 20040912
  13. VALPROATE SODIUM [Suspect]
     Route: 048
     Dates: start: 20040923
  14. CLEXANE [Suspect]
     Indication: THROMBOSIS PROPHYLAXIS
     Route: 058
     Dates: start: 20040911
  15. DEPO-CLINOVIR [Suspect]
     Indication: CONTRACEPTION
     Dosage: 1 TIME EVERY 3 MONTH
     Route: 030
     Dates: start: 20040601
  16. AMINOSTERIL [Suspect]
     Indication: AMINO ACID LEVEL
     Dosage: 1 TIME 250 ML
     Route: 042
     Dates: start: 20040911
  17. INSUMAN [Concomitant]
     Indication: HYPERGLYCAEMIA
     Dosage: 3 IU DAILY
     Route: 058
     Dates: start: 20040918, end: 20040920
  18. INSUMAN [Concomitant]
     Dosage: 5 IU DAILY
     Route: 058
     Dates: start: 20040923, end: 20040928
  19. EUTHROID-1 [Suspect]
     Indication: HYPOTHYROIDISM
     Dosage: 100 ?G DAILY
     Route: 048
     Dates: start: 20040918
  20. KONAKION [Concomitant]
     Indication: COAGULOPATHY
     Dosage: 1 VIAL DAILY
     Route: 042
     Dates: start: 20040919, end: 20040928
  21. MORPHINE [Concomitant]
     Indication: PAIN
     Dosage: 20 MG (0.5 VIAL)
     Route: 042
     Dates: start: 20040923, end: 20040929
  22. CLONT [Concomitant]
     Indication: STAPHYLOCOCCAL SEPSIS
     Route: 042
     Dates: start: 20040924, end: 20040930
  23. ATOSIL [Suspect]
     Indication: SEDATION
     Route: 048
     Dates: start: 20040926, end: 20041003
  24. PANTOZOL [Suspect]
     Dosage: 1 TIME 40 MG
     Route: 048
     Dates: start: 20040927
  25. KALINOR-BRAUSETABLETTEN [Suspect]
     Indication: HYPOKALAEMIA
     Route: 048
     Dates: start: 20040928, end: 20041013
  26. ACETAMINOPHEN [Suspect]
     Indication: PYREXIA
     Dosage: SUPPOSITORY 1 TIME 1000 MG
     Route: 054
     Dates: start: 20041001, end: 20041001
  27. NOREPINEPHRINE BITARTRATE [Concomitant]
     Indication: ENDOTRACHEAL INTUBATION
     Dosage: 1 TIME 12.5 MG / 50 ML
     Route: 042
     Dates: start: 20040914, end: 20040925

REACTIONS (2)
  - ARTERIOVENOUS SHUNT OPERATION [None]
  - STEVENS-JOHNSON SYNDROME [None]
